FAERS Safety Report 7001552-8 (Version None)
Quarter: 2010Q3

REPORT INFORMATION
  Report Type: 
  Country: None (occurrence: None)
  Receive Date: 20100916
  Receipt Date: 20100903
  Transmission Date: 20110219
  Serious: Yes (Hospitalization)
  Sender: FDA-Public Use
  Company Number: 2010PL000138

PATIENT
  Age: 27 Year
  Sex: Male

DRUGS (2)
  1. IMURAN [Suspect]
  2. CIMZIA [Suspect]
     Indication: COLITIS ULCERATIVE
     Dosage: 400 MG; 1X MONTH; SC
     Route: 058
     Dates: start: 20081215

REACTIONS (1)
  - NO ADVERSE EVENT [None]
